FAERS Safety Report 23760967 (Version 1)
Quarter: 2024Q2

REPORT INFORMATION
  Report Type: Spontaneous
  Country: US (occurrence: US)
  Receive Date: 20240419
  Receipt Date: 20240419
  Transmission Date: 20240716
  Serious: Yes (Death, Hospitalization)
  Sender: FDA-Public Use
  Company Number: US-DRL-USA-LIT/USA/24/0005825

PATIENT
  Age: 43 Year
  Sex: Female

DRUGS (3)
  1. MINOCYCLINE [Suspect]
     Active Substance: MINOCYCLINE HYDROCHLORIDE
     Indication: Acinetobacter test positive
  2. AMPICILLIN SODIUM\SULBACTAM SODIUM [Suspect]
     Active Substance: AMPICILLIN SODIUM\SULBACTAM SODIUM
     Indication: Acinetobacter test positive
     Dosage: 9G OF AMPICILLIN/SULBACTAM EVERY 8 HOURS AS A PROLONGED INFUSION OVER 4 HOURS (EQUIVALENT TO 3 G EVE
     Route: 042
  3. MEROPENEM [Suspect]
     Active Substance: MEROPENEM
     Indication: Acinetobacter test positive
     Dosage: 2G EVERY 8 HOURS

REACTIONS (1)
  - Drug ineffective [Fatal]
